FAERS Safety Report 5514979-8 (Version None)
Quarter: 2007Q4

REPORT INFORMATION
  Report Type: 
  Country: None (occurrence: None)
  Receive Date: 20071113
  Receipt Date: 20061101
  Transmission Date: 20080405
  Serious: No
  Sender: FDA-Public Use
  Company Number: A0625845A

PATIENT
  Age: 73 Year
  Sex: Male

DRUGS (5)
  1. CARVEDILOL [Suspect]
     Indication: LEFT VENTRICULAR DYSFUNCTION
     Dosage: 25MG TWICE PER DAY
     Route: 048
     Dates: start: 20021101
  2. LISINOPRIL [Concomitant]
  3. LIPITOR [Concomitant]
  4. COUMADIN [Concomitant]
  5. ASPIRIN [Concomitant]

REACTIONS (2)
  - FATIGUE [None]
  - LOSS OF LIBIDO [None]
